FAERS Safety Report 20647833 (Version 1)
Quarter: 2022Q1

REPORT INFORMATION
  Report Type: Spontaneous
  Country: US (occurrence: None)
  Receive Date: 20220328
  Receipt Date: 20220328
  Transmission Date: 20220423
  Serious: Yes (Other)
  Sender: FDA-Public Use
  Company Number: None

PATIENT
  Age: 47 Year
  Sex: Male
  Weight: 85.5 kg

DRUGS (3)
  1. OXYCODONE [Suspect]
     Active Substance: OXYCODONE
     Indication: Complex regional pain syndrome
     Dosage: FREQUENCY : EVERY 6 HOURS;?
     Route: 048
     Dates: start: 20220325, end: 20220328
  2. CYMBALTA [Concomitant]
     Active Substance: DULOXETINE HYDROCHLORIDE
  3. ADVIL [Concomitant]
     Active Substance: IBUPROFEN

REACTIONS (13)
  - Product substitution issue [None]
  - Inadequate analgesia [None]
  - Pain [None]
  - Disturbance in attention [None]
  - Mobility decreased [None]
  - Fatigue [None]
  - Headache [None]
  - Rash [None]
  - Rash [None]
  - Cough [None]
  - Drug withdrawal syndrome [None]
  - Metabolic disorder [None]
  - Neuropathy peripheral [None]

NARRATIVE: CASE EVENT DATE: 20220325
